FAERS Safety Report 5637700-1 (Version None)
Quarter: 2008Q1

REPORT INFORMATION
  Report Type: 
  Country: None (occurrence: None)
  Receive Date: 20080220
  Receipt Date: 20080205
  Transmission Date: 20080703
  Serious: Yes (Hospitalization)
  Sender: FDA-Public Use
  Company Number: US022589

PATIENT
  Age: 53 Year
  Sex: Female

DRUGS (8)
  1. MODAFINIL [Suspect]
     Indication: FATIGUE
     Dosage: 200 MG QD ORAL
     Route: 048
  2. FLUOXETINE [Suspect]
     Indication: FATIGUE
     Dosage: 40 MG QD
  3. FLUOXETINE [Suspect]
     Indication: FATIGUE
     Dosage: 40 MG QD
  4. AMANTADINE HCL [Concomitant]
  5. BACLOFEN [Concomitant]
  6. OXYBUTYNIN CHLORIDE [Concomitant]
  7. INTERFERON BETA INJECTIONS [Concomitant]
  8. LEVOTHYROXINE SODIUM [Concomitant]

REACTIONS (16)
  - ABNORMAL BEHAVIOUR [None]
  - ABNORMAL DREAMS [None]
  - AFFECT LABILITY [None]
  - CONFUSIONAL STATE [None]
  - CRYING [None]
  - DELIRIUM [None]
  - DELUSION OF GRANDEUR [None]
  - DEPERSONALISATION [None]
  - DIARRHOEA [None]
  - DISORIENTATION [None]
  - HALLUCINATIONS, MIXED [None]
  - HEADACHE [None]
  - INFLUENZA LIKE ILLNESS [None]
  - PYREXIA [None]
  - SEROTONIN SYNDROME [None]
  - WITHDRAWAL SYNDROME [None]
